FAERS Safety Report 8601080-X (Version None)
Quarter: 2012Q3

REPORT INFORMATION
  Report Type: 
  Country: None (occurrence: None)
  Receive Date: 20120817
  Receipt Date: 20110924
  Transmission Date: 20120928
  Serious: Yes (Other)
  Sender: FDA-Public Use
  Company Number: PHEH2011US013204

PATIENT
  Sex: Female

DRUGS (7)
  1. GLIMEPIRIDE [Concomitant]
  2. LISINOPRIL [Suspect]
     Dosage: 1 DF, DAILY (10 MG)
  3. AMLODIPINE [Concomitant]
  4. DIOVAN HCT [Suspect]
     Dosage: 1 DF, DAILY
  5. MICARDIS [Suspect]
     Dosage: 1 DF, DAILY
  6. METFORMIN HCL [Concomitant]
  7. FISH OIL [Concomitant]

REACTIONS (2)
  - ENDOMETRIAL CANCER [None]
  - COUGH [None]
